FAERS Safety Report 6409594-8 (Version None)
Quarter: 2009Q4

REPORT INFORMATION
  Report Type: 
  Country: None (occurrence: None)
  Receive Date: 20091019
  Receipt Date: 20091019
  Transmission Date: 20100525
  Serious: No
  Sender: FDA-Public Use
  Company Number: None

PATIENT
  Age: 73 Year
  Sex: Female

DRUGS (2)
  1. ERYTHROMYCIN ETHLSUCCINATE [Suspect]
     Dosage: 400 MG QID
     Dates: start: 20080722, end: 20080724
  2. ATORVASTATIN [Concomitant]

REACTIONS (6)
  - BODY TEMPERATURE INCREASED [None]
  - FLANK PAIN [None]
  - HEPATITIS CHOLESTATIC [None]
  - LIVER INJURY [None]
  - POLLAKIURIA [None]
  - URINARY TRACT INFECTION [None]
